FAERS Safety Report 19746929 (Version 1)
Quarter: 2021Q3

REPORT INFORMATION
  Report Type: Spontaneous
  Country: US (occurrence: US)
  Receive Date: 20210826
  Receipt Date: 20210826
  Transmission Date: 20211014
  Serious: No
  Sender: FDA-Public Use
  Company Number: US-JNJFOC-20210831284

PATIENT
  Sex: Female

DRUGS (1)
  1. MENS ROGAINE EXTRA STRENGTH [Suspect]
     Active Substance: MINOXIDIL
     Indication: HAIR GROWTH ABNORMAL
     Dosage: UP TO THE LINE OF THE DROPPER. ONCE DAILY.
     Route: 065
     Dates: start: 202108

REACTIONS (4)
  - Application site pruritus [Unknown]
  - Intentional product misuse [Unknown]
  - Product use issue [Unknown]
  - Application site pain [Unknown]

NARRATIVE: CASE EVENT DATE: 202108
